FAERS Safety Report 6471484-2 (Version None)
Quarter: 2009Q4

REPORT INFORMATION
  Report Type: 
  Country: None (occurrence: None)
  Receive Date: 20091203
  Receipt Date: 20080606
  Transmission Date: 20100525
  Serious: Yes (Other)
  Sender: FDA-Public Use
  Company Number: GB-ELI_LILLY_AND_COMPANY-GB200802006808

PATIENT
  Sex: Female
  Weight: 68 kg

DRUGS (8)
  1. FORTEO [Suspect]
     Indication: OSTEOPOROSIS
     Dosage: 20 UG, DAILY (1/D)
     Route: 058
     Dates: start: 20080226, end: 20080227
  2. ALENDRONIC ACID [Concomitant]
     Indication: OSTEOPOROSIS
     Dosage: UNK, UNKNOWN
     Route: 065
  3. CALCICHEW [Concomitant]
     Indication: OSTEOPOROSIS
     Dosage: UNK, UNKNOWN
     Route: 065
  4. CO-CODAMOL [Concomitant]
     Indication: PAIN
     Dosage: UNK, UNKNOWN
     Route: 065
  5. ASPIRIN [Concomitant]
     Dosage: UNK, UNKNOWN
     Route: 065
  6. FRUSEMIDE [Concomitant]
     Dosage: UNK, UNKNOWN
     Route: 065
  7. SERETIDE [Concomitant]
     Dosage: UNK, UNKNOWN
     Route: 065
  8. VENTOLIN [Concomitant]
     Dosage: UNK, UNKNOWN
     Route: 065

REACTIONS (3)
  - ARTHRALGIA [None]
  - BACK PAIN [None]
  - CONDITION AGGRAVATED [None]
